FAERS Safety Report 24354199 (Version 1)
Quarter: 2024Q3

REPORT INFORMATION
  Report Type: Report from Study
  Country: US (occurrence: US)
  Receive Date: 20240923
  Receipt Date: 20240923
  Transmission Date: 20241017
  Serious: Yes (Other)
  Sender: TAKEDA
  Company Number: US-TAKEDA-2024TUS092706

PATIENT
  Sex: Female
  Weight: 38.5 kg

DRUGS (19)
  1. MARIBAVIR [Suspect]
     Active Substance: MARIBAVIR
     Indication: Product used for unknown indication
     Dosage: UNK
     Route: 065
  2. ASPIRIN [Concomitant]
     Active Substance: ASPIRIN
     Dosage: 81 MILLIGRAM, QD
     Route: 048
  3. ATOVAQUONE [Concomitant]
     Active Substance: ATOVAQUONE
     Dosage: 1500 MILLIGRAM, QD
     Route: 048
  4. AZITHROMYCIN [Concomitant]
     Active Substance: AZITHROMYCIN
     Dosage: 600 MILLIGRAM, QD
     Route: 048
  5. BACITRACIN [Concomitant]
     Active Substance: BACITRACIN
     Dosage: 1 DOSAGE FORM, QD
     Route: 061
  6. DARUNAVIR [Concomitant]
     Active Substance: DARUNAVIR
     Dosage: 600 MILLIGRAM, BID
     Route: 048
  7. DOLUTEGRAVIR [Concomitant]
     Active Substance: DOLUTEGRAVIR
     Dosage: 50 MILLIGRAM, Q12H
     Route: 048
  8. EMTRICITABINE\TENOFOVIR [Concomitant]
     Active Substance: EMTRICITABINE\TENOFOVIR
     Dosage: 1 DOSAGE FORM, QD
     Route: 048
  9. EUCERIN [Concomitant]
     Active Substance: ENSULIZOLE\EUCERIN\OCTINOXATE\OCTISALATE\TITANIUM DIOXIDE\ZINC OXIDE
     Dosage: 1 DOSAGE FORM, TID
     Route: 061
  10. FERROUS SULFATE [Concomitant]
     Active Substance: FERROUS SULFATE
     Dosage: 324 MILLIGRAM, QD
     Route: 048
  11. FOLIC ACID [Concomitant]
     Active Substance: FOLIC ACID
     Dosage: 3 MILLIGRAM, QD
     Route: 048
  12. FUROSEMIDE [Concomitant]
     Active Substance: FUROSEMIDE
     Dosage: 40 MILLIGRAM, QD
     Route: 048
  13. GANCICLOVIR [Concomitant]
     Active Substance: GANCICLOVIR
     Dosage: 1.25 MILLIGRAM/KILOGRAM
     Route: 042
  14. HEPARIN [Concomitant]
     Active Substance: HEPARIN SODIUM
     Dosage: 5000 INTERNATIONAL UNIT, Q12H
     Route: 058
  15. LIDOCAINE [Concomitant]
     Active Substance: LIDOCAINE
     Dosage: 1 DOSAGE FORM
     Route: 062
  16. RITONAVIR [Concomitant]
     Active Substance: RITONAVIR
     Dosage: 100 MILLIGRAM, BID
     Route: 048
  17. ROSUVASTATIN [Concomitant]
     Active Substance: ROSUVASTATIN\ROSUVASTATIN CALCIUM
     Dosage: 10 MILLIGRAM, QD
     Route: 048
  18. SODIUM BICARBONATE [Concomitant]
     Active Substance: SODIUM BICARBONATE
     Dosage: 2600 MILLIGRAM, TID
     Route: 048
  19. ZINC SULFATE [Concomitant]
     Active Substance: ZINC SULFATE
     Dosage: 220 MILLIGRAM, QD
     Route: 048

REACTIONS (8)
  - HIV infection [Unknown]
  - Bacteraemia [Unknown]
  - Renal impairment [Unknown]
  - Insurance issue [Unknown]
  - Drug resistance [Unknown]
  - Pulse abnormal [Unknown]
  - Illness [Unknown]
  - Product use in unapproved indication [Unknown]
